FAERS Safety Report 15283159 (Version 1)
Quarter: 2018Q4

REPORT INFORMATION
  Report Type: Spontaneous
  Country: ZA (occurrence: ZA)
  Receive Date: 20180816
  Receipt Date: 20180816
  Transmission Date: 20190204
  Serious: Yes (Hospitalization)
  Sender: FDA-Public Use
  Company Number: ZA-DRREDDYS-SAF/SAF/18/0102279

PATIENT
  Sex: Male

DRUGS (9)
  1. PHARMAPRESS CO [Suspect]
     Active Substance: ENALAPRIL MALEATE\HYDROCHLOROTHIAZIDE
     Indication: HYPERTENSION
     Route: 048
  2. REDILANZ [Suspect]
     Active Substance: OLANZAPINE
     Indication: DEPRESSION
     Route: 048
  3. EPILIM [Suspect]
     Active Substance: VALPROATE SODIUM
     Route: 048
  4. GLUCOPHAGE [Suspect]
     Active Substance: METFORMIN HYDROCHLORIDE
     Indication: DIABETES MELLITUS
     Route: 048
  5. AMLOC (AMLODIPINE MALEATE) [Suspect]
     Active Substance: AMLODIPINE MALEATE
     Indication: HYPERTENSION
     Route: 048
  6. ECOTRIN [Suspect]
     Active Substance: ASPIRIN
     Indication: ANTICOAGULANT THERAPY
     Route: 048
  7. DIAGLUCIDE [Suspect]
     Active Substance: GLICLAZIDE
     Indication: DIABETES MELLITUS
     Route: 048
  8. EPILIM [Suspect]
     Active Substance: VALPROATE SODIUM
     Indication: EPILEPSY
     Route: 048
  9. ADCO SIMVASTATIN [Suspect]
     Active Substance: SIMVASTATIN
     Indication: BLOOD CHOLESTEROL
     Route: 048

REACTIONS (1)
  - Hospitalisation [Unknown]
